FAERS Safety Report 5827207-0 (Version None)
Quarter: 2008Q3

REPORT INFORMATION
  Report Type: 
  Country: None (occurrence: None)
  Receive Date: 20080725
  Receipt Date: 20080710
  Transmission Date: 20090109
  Serious: Yes (Hospitalization)
  Sender: FDA-Public Use
  Company Number: 100#03#2008-02423

PATIENT
  Age: 47 Year
  Sex: Male

DRUGS (3)
  1. SERTRALINE [Suspect]
     Indication: DYSURIA
     Dosage: 50 MG, ORAL
     Route: 048
     Dates: start: 20060123, end: 20060222
  2. BISOPROLOL FUMARATE [Concomitant]
  3. HYDROCHLOROTHIAZIDE [Concomitant]

REACTIONS (4)
  - ABDOMINAL DISCOMFORT [None]
  - ASTHENIA [None]
  - CHOLESTEROSIS [None]
  - HEPATOTOXICITY [None]
